FAERS Safety Report 16817212 (Version 1)
Quarter: 2019Q4

REPORT INFORMATION
  Report Type: Spontaneous
  Country: US (occurrence: US)
  Receive Date: 20190917
  Receipt Date: 20190917
  Transmission Date: 20200122
  Serious: No
  Sender: FDA-Public Use
  Company Number: None

PATIENT
  Age: 72 Year
  Sex: Female

DRUGS (22)
  1. BUMEX [Concomitant]
     Active Substance: BUMETANIDE
  2. COLACE [Concomitant]
     Active Substance: DOCUSATE SODIUM
  3. VICKS NYQUIL [Concomitant]
     Active Substance: ACETAMINOPHEN\DEXTROMETHORPHAN HYDROBROMIDE\DOXYLAMINE SUCCINATE
  4. SPIRONOLACTONE. [Concomitant]
     Active Substance: SPIRONOLACTONE
  5. FOSAMAX [Concomitant]
     Active Substance: ALENDRONATE SODIUM
  6. PERCOCET [Concomitant]
     Active Substance: ACETAMINOPHEN\OXYCODONE HYDROCHLORIDE
  7. ASPIRIN. [Concomitant]
     Active Substance: ASPIRIN
  8. VITAMIN D [Concomitant]
     Active Substance: VITAMIN D NOS
  9. WARFARIN [Concomitant]
     Active Substance: WARFARIN
  10. ALDACTONE [Concomitant]
     Active Substance: SPIRONOLACTONE
  11. ATIVAN [Concomitant]
     Active Substance: LORAZEPAM
  12. BUMETANIDE. [Concomitant]
     Active Substance: BUMETANIDE
  13. GABAPENTIN. [Concomitant]
     Active Substance: GABAPENTIN
  14. PANTOPRAZOLE [Concomitant]
     Active Substance: PANTOPRAZOLE
  15. MAG OXIDE [Concomitant]
     Active Substance: MAGNESIUM OXIDE
  16. GLIMEPIRIDE. [Concomitant]
     Active Substance: GLIMEPIRIDE
  17. OXYCODONE [Concomitant]
     Active Substance: OXYCODONE
  18. SERTRALINE [Concomitant]
     Active Substance: SERTRALINE HYDROCHLORIDE
  19. OXYCODONE AND ACETAMINOPHEN [Concomitant]
     Active Substance: ACETAMINOPHEN\OXYCODONE HYDROCHLORIDE
  20. SILDENAFIL. [Suspect]
     Active Substance: SILDENAFIL
     Indication: CHRONIC KIDNEY DISEASE
     Route: 048
  21. ANASTROZOLE. [Concomitant]
     Active Substance: ANASTROZOLE
  22. ZOLOFT [Concomitant]
     Active Substance: SERTRALINE HYDROCHLORIDE

REACTIONS (1)
  - Death [None]
